FAERS Safety Report 23466341 (Version 1)
Quarter: 2024Q1

REPORT INFORMATION
  Report Type: Report from Study
  Country: IE (occurrence: IE)
  Receive Date: 20240201
  Receipt Date: 20240201
  Transmission Date: 20240410
  Serious: Yes (Hospitalization)
  Sender: FDA-Public Use
  Company Number: IE-AstraZeneca-2024A020450

PATIENT
  Age: 299 Day
  Sex: Male

DRUGS (2)
  1. SYNAGIS [Suspect]
     Active Substance: PALIVIZUMAB
     Indication: Premature baby
     Dosage: UNKNOWN
     Route: 030
     Dates: start: 20230927
  2. SYNAGIS [Suspect]
     Active Substance: PALIVIZUMAB
     Dosage: 15.0 MG/KG UNKNOWN, ONCE IN 4 WEEKS
     Route: 030
     Dates: start: 20231025

REACTIONS (2)
  - Cough [Not Recovered/Not Resolved]
  - Malaise [Not Recovered/Not Resolved]

NARRATIVE: CASE EVENT DATE: 20240121
